FAERS Safety Report 7911368-3 (Version None)
Quarter: 2011Q4

REPORT INFORMATION
  Report Type: 
  Country: None (occurrence: None)
  Receive Date: 20111114
  Receipt Date: 20111104
  Transmission Date: 20120403
  Serious: Yes (Other)
  Sender: FDA-Public Use
  Company Number: CA-UCBSA-045105

PATIENT
  Age: 54 Year
  Sex: Female
  Weight: 68.181 kg

DRUGS (7)
  1. CLINDAMYCINE [Concomitant]
     Indication: INFECTION
     Dosage: 300 MG THRICE A DAY AS NEEDED
     Route: 048
     Dates: start: 20110415
  2. LIPITOR [Concomitant]
     Indication: HYPERLIPIDAEMIA
     Route: 048
  3. TRAVATAN [Concomitant]
     Indication: GLAUCOMA
     Dosage: DAILY DOSE: 1 DROP
  4. ALPHAGAN [Concomitant]
     Indication: GLAUCOMA
     Dosage: DAILY DOSE: 2 DROPS
  5. ELAVIL [Concomitant]
     Indication: FIBROMYALGIA
     Route: 048
  6. CIMZIA [Suspect]
     Indication: CROHN'S DISEASE
     Route: 058
     Dates: start: 20101001
  7. DICLOFENAC SODIUM [Concomitant]
     Indication: INFLAMMATION
     Dosage: SR
     Route: 048

REACTIONS (1)
  - CELLULITIS [None]
